FAERS Safety Report 6951567 (Version 1)
Quarter: 2020Q3

REPORT INFORMATION
  Report Type: Report from Study
  Country: US (occurrence: US)
  Receive Date: 20090325
  Receipt Date: 20090325
  Transmission Date: 20201105
  Serious: Yes (Hospitalization, Other)
  Sender: FDA-Public Use
  Company Number: US-ROCHE-621719

PATIENT
  Age: 73 Year
  Sex: Female

DRUGS (5)
  1. VITAMINE D [Concomitant]
  2. VITAMIN B12 [Concomitant]
     Active Substance: CYANOCOBALAMIN
     Route: 048
  3. CALCIUM [Concomitant]
     Active Substance: CALCIUM
  4. IBANDRONIC ACID. [Suspect]
     Active Substance: IBANDRONIC ACID
     Indication: OSTEOPENIA
     Route: 065
     Dates: start: 2007
  5. MULTI?VITAMIN [Concomitant]
     Active Substance: .ALPHA.-TOCOPHEROL ACETATE, DL-\ASCORBIC ACID\CYANOCOBALAMIN\FLUORIDE ION\FOLIC ACID\NIACIN\PYRIDOXINE\RIBOFLAVIN\THIAMINE\VITAMIN A\VITAMIN D

REACTIONS (5)
  - Paraesthesia [Recovering/Resolving]
  - Diverticulum [Unknown]
  - Gastric ulcer [Unknown]
  - Musculoskeletal pain [Unknown]
  - Full blood count decreased [Unknown]

NARRATIVE: CASE EVENT DATE: 20080601
